FAERS Safety Report 7769601-7 (Version None)
Quarter: 2011Q3

REPORT INFORMATION
  Report Type: 
  Country: None (occurrence: None)
  Receive Date: 20110922
  Receipt Date: 20100923
  Transmission Date: 20111222
  Serious: No
  Sender: FDA-Public Use
  Company Number: US-ASTRAZENECA-2010SE45186

PATIENT
  Sex: Male

DRUGS (2)
  1. LEXAPRO [Concomitant]
  2. SEROQUEL XR [Suspect]
     Indication: MAJOR DEPRESSION
     Route: 048

REACTIONS (1)
  - FEELING JITTERY [None]
